FAERS Safety Report 6101106-1 (Version None)
Quarter: 2009Q1

REPORT INFORMATION
  Report Type: 
  Country: None (occurrence: None)
  Receive Date: 20090304
  Receipt Date: 20090303
  Transmission Date: 20090719
  Serious: Yes (Death, Other)
  Sender: FDA-Public Use
  Company Number: US-WYE-H08197309

PATIENT
  Age: 46 Year
  Sex: Male

DRUGS (2)
  1. PRISTIQ [Suspect]
     Route: 048
     Dates: start: 20090120, end: 20090121
  2. RAPTIVA [Suspect]
     Indication: PSORIASIS
     Dosage: UNKNOWN
     Route: 065

REACTIONS (4)
  - MALAISE [None]
  - PNEUMONIA [None]
  - RESPIRATORY ARREST [None]
  - VOMITING [None]
